FAERS Safety Report 9192764 (Version 1)
Quarter: 2013Q1

REPORT INFORMATION
  Report Type: Spontaneous
  Country: US (occurrence: None)
  Receive Date: 20130325
  Receipt Date: 20130325
  Transmission Date: 20140127
  Serious: Yes (Hospitalization)
  Sender: FDA-Public Use
  Company Number: FK201300842

PATIENT
  Age: 70 Year
  Sex: Female

DRUGS (3)
  1. VANCOMYCIN [Suspect]
     Indication: PNEUMONIA
     Route: 042
  2. PIPERACILLIN/TAZOBACTAM [Suspect]
     Indication: PNEUMONIA
  3. CIPROFLOXACIN [Suspect]
     Indication: PNEUMONIA

REACTIONS (2)
  - Linear IgA disease [None]
  - Linear IgA disease [None]
